FAERS Safety Report 6306208-2 (Version None)
Quarter: 2009Q3

REPORT INFORMATION
  Report Type: 
  Country: None (occurrence: None)
  Receive Date: 20090812
  Receipt Date: 20090730
  Transmission Date: 20100115
  Serious: No
  Sender: FDA-Public Use
  Company Number: US-BAYER-200929183NA

PATIENT
  Age: 43 Year
  Sex: Female

DRUGS (6)
  1. ULTRAVIST 370 [Suspect]
     Indication: COMPUTERISED TOMOGRAM ABDOMEN
     Dosage: TOTAL DAILY DOSE: 120 ML  UNIT DOSE: 500 ML
     Route: 042
     Dates: start: 20090730, end: 20090730
  2. ULTRAVIST 370 [Suspect]
     Route: 048
     Dates: start: 20090730, end: 20090730
  3. ADVAIR HFA [Concomitant]
  4. ALBUTEROL [Concomitant]
  5. SINGULAIR [Concomitant]
  6. MULTI-VITAMIN [Concomitant]

REACTIONS (2)
  - PRURITUS [None]
  - URTICARIA [None]
